FAERS Safety Report 14658902 (Version 1)
Quarter: 2018Q1

REPORT INFORMATION
  Report Type: Spontaneous
  Country: US (occurrence: US)
  Receive Date: 20180320
  Receipt Date: 20180320
  Transmission Date: 20180509
  Serious: Yes (Hospitalization, Other)
  Sender: FDA-Public Use
  Company Number: US-MICRO LABS LIMITED-BB2018-00304

PATIENT
  Age: 67 Year
  Sex: Male

DRUGS (1)
  1. LOSARTAN. [Suspect]
     Active Substance: LOSARTAN
     Indication: HYPERTENSION
     Dosage: LOSARTAN 50 MG TWICE A DAY FOR MORE THAN THREE YEARS
     Route: 065

REACTIONS (1)
  - Sprue-like enteropathy [Recovered/Resolved]
